FAERS Safety Report 18412465 (Version 2)
Quarter: 2020Q4

REPORT INFORMATION
  Report Type: Report from Study
  Country: None (occurrence: US)
  Receive Date: 20201021
  Receipt Date: 20201215
  Transmission Date: 20210114
  Serious: Yes (Other)
  Sender: FDA-Public Use
  Company Number: US-ABBVIE-20K-163-3612640-00

PATIENT
  Sex: Male

DRUGS (1)
  1. HUMIRA [Suspect]
     Active Substance: ADALIMUMAB
     Indication: HIDRADENITIS
     Dosage: CITRATE FREE
     Route: 058

REACTIONS (5)
  - Purpura [Not Recovered/Not Resolved]
  - Inflammation [Not Recovered/Not Resolved]
  - Induration [Recovering/Resolving]
  - Hidradenitis [Recovering/Resolving]
  - Infection [Not Recovered/Not Resolved]
